FAERS Safety Report 5828074-1 (Version None)
Quarter: 2008Q3

REPORT INFORMATION
  Report Type: 
  Country: None (occurrence: None)
  Receive Date: 20080730
  Receipt Date: 20070703
  Transmission Date: 20090109
  Serious: No
  Sender: FDA-Public Use
  Company Number: A0661440A

PATIENT
  Sex: Female
  Weight: 4.5 kg

DRUGS (2)
  1. ZANTAC [Suspect]
     Dosage: .75TSP TWICE PER DAY
     Route: 048
     Dates: start: 20070101
  2. NO CONCURRENT MEDICATION [Concomitant]

REACTIONS (3)
  - DRUG PRESCRIBING ERROR [None]
  - OVERDOSE [None]
  - SOMNOLENCE [None]
